FAERS Safety Report 19019170 (Version 2)
Quarter: 2021Q1

REPORT INFORMATION
  Report Type: Report from Study
  Country: BR (occurrence: BR)
  Receive Date: 20210317
  Receipt Date: 20210328
  Transmission Date: 20210420
  Serious: Yes (Other)
  Sender: FDA-Public Use
  Company Number: NVSC2021BR058312

PATIENT
  Sex: Male
  Weight: 70 kg

DRUGS (1)
  1. DIOVAN AMLO FIX [Suspect]
     Active Substance: AMLODIPINE\VALSARTAN
     Indication: HYPERTENSION
     Dosage: 1 DF, QD (AROUND 08 YEARS)
     Route: 065

REACTIONS (2)
  - Drug dependence [Unknown]
  - Diabetes mellitus [Not Recovered/Not Resolved]
